FAERS Safety Report 9701680 (Version 1)
Quarter: 2013Q4

REPORT INFORMATION
  Report Type: Spontaneous
  Country: US (occurrence: US)
  Receive Date: 20131119
  Receipt Date: 20131119
  Transmission Date: 20140711
  Serious: No
  Sender: FDA-Public Use
  Company Number: US-SAVIENT-2013S1000027

PATIENT
  Age: 30 Year
  Sex: Male

DRUGS (2)
  1. KRYSTEXXA [Suspect]
     Indication: GOUTY TOPHUS
     Dosage: DRUG ROUTE: INTRAVENOUS
     Route: 042
     Dates: start: 20130411, end: 20130411
  2. KRYSTEXXA [Suspect]
     Dosage: DRUG ROUTE: INTRAVENOUS
     Route: 042

REACTIONS (1)
  - Therapeutic response decreased [Not Recovered/Not Resolved]
